FAERS Safety Report 10268569 (Version 1)
Quarter: 2014Q2

REPORT INFORMATION
  Report Type: Spontaneous
  Country: US (occurrence: None)
  Receive Date: 20140627
  Receipt Date: 20140627
  Transmission Date: 20141212
  Serious: Yes (Other)
  Sender: FDA-Public Use
  Company Number: None

PATIENT
  Age: 11 Year
  Sex: Female
  Weight: 35.38 kg

DRUGS (1)
  1. CLEAN + CLEAR 10% [Suspect]
     Indication: ACNE
     Dosage: ABOUT ONE MONTH, EVERY OTHER DAY, APPLIED TO A SURFACE, USUALLY THE SKIN

REACTIONS (1)
  - Urticaria [None]
